FAERS Safety Report 16337832 (Version 1)
Quarter: 2019Q2

REPORT INFORMATION
  Report Type: Report from Study
  Country: IN (occurrence: IN)
  Receive Date: 20190521
  Receipt Date: 20190521
  Transmission Date: 20190711
  Serious: Yes (Death)
  Sender: FDA-Public Use
  Company Number: PHHY2019IN116292

PATIENT
  Age: 85 Year
  Sex: Female

DRUGS (1)
  1. VYMADA [Suspect]
     Active Substance: SACUBITRIL\VALSARTAN
     Indication: CARDIAC FAILURE CONGESTIVE
     Dosage: 50 MG, QD
     Route: 048
     Dates: start: 20190119

REACTIONS (2)
  - Inappropriate schedule of product administration [Fatal]
  - Prescribed underdose [Fatal]

NARRATIVE: CASE EVENT DATE: 20190119
